FAERS Safety Report 7418483-1 (Version None)
Quarter: 2011Q2

REPORT INFORMATION
  Report Type: 
  Country: None (occurrence: None)
  Receive Date: 20110415
  Receipt Date: 20110412
  Transmission Date: 20111010
  Serious: No
  Sender: FDA-Public Use
  Company Number: US-TEVA-276594USA

PATIENT
  Age: 19 Year
  Sex: Female
  Weight: 52.21 kg

DRUGS (2)
  1. PLAN B ONE-STEP [Suspect]
     Indication: POST COITAL CONTRACEPTION
     Dosage: 1.5 MILLIGRAM;
     Route: 048
     Dates: start: 20110412, end: 20110412
  2. UNKNOWN NAME [Concomitant]
     Indication: MULTIPLE ALLERGIES
     Route: 048
     Dates: start: 20110409

REACTIONS (2)
  - SWELLING FACE [None]
  - RASH GENERALISED [None]
